FAERS Safety Report 25056546 (Version 1)
Quarter: 2025Q1

REPORT INFORMATION
  Report Type: Report from Study
  Country: MX (occurrence: MX)
  Receive Date: 20250310
  Receipt Date: 20250310
  Transmission Date: 20250409
  Serious: Yes (Other)
  Sender: BIOVITRUM
  Company Number: MX-AstraZeneca-CH-00775469A

PATIENT
  Age: 7 Week
  Sex: Female
  Weight: 5 kg

DRUGS (9)
  1. PALIVIZUMAB [Suspect]
     Active Substance: PALIVIZUMAB
     Indication: Antiviral prophylaxis
     Route: 030
     Dates: start: 20241127, end: 20241127
  2. PALIVIZUMAB [Suspect]
     Active Substance: PALIVIZUMAB
     Route: 030
     Dates: start: 20241226, end: 20241226
  3. PALIVIZUMAB [Suspect]
     Active Substance: PALIVIZUMAB
     Route: 030
     Dates: start: 20250129, end: 20250129
  4. PALIVIZUMAB [Suspect]
     Active Substance: PALIVIZUMAB
     Route: 030
     Dates: start: 20250226, end: 20250226
  5. PROPRANOLOL [Concomitant]
     Active Substance: PROPRANOLOL HYDROCHLORIDE
     Indication: Blood pressure abnormal
     Route: 048
     Dates: start: 20241105
  6. CAPTOPRIL [Concomitant]
     Active Substance: CAPTOPRIL
     Indication: Cardiac disorder
     Route: 065
     Dates: start: 202411
  7. SPIRONOLACTONE [Concomitant]
     Active Substance: SPIRONOLACTONE
     Indication: Cardiac disorder
     Route: 065
     Dates: start: 202411
  8. VITAMINS [Concomitant]
     Active Substance: VITAMINS
     Indication: Product used for unknown indication
     Route: 065
     Dates: start: 202411
  9. FUROSEMIDE [Concomitant]
     Active Substance: FUROSEMIDE
     Indication: Pollakiuria
     Dates: start: 20250223

REACTIONS (11)
  - Crying [Recovered/Resolved]
  - Irritability [Recovered/Resolved]
  - Injection site pain [Recovered/Resolved]
  - Incorrect dosage administered [Unknown]
  - Feeling hot [Recovered/Resolved]
  - Pulmonary congestion [Unknown]
  - Irritability [Recovered/Resolved]
  - Crying [Recovered/Resolved]
  - Irritability [Recovered/Resolved]
  - Crying [Recovered/Resolved]
  - Pain in extremity [Recovered/Resolved]

NARRATIVE: CASE EVENT DATE: 20241226
